FAERS Safety Report 9224573 (Version 1)
Quarter: 2013Q2

REPORT INFORMATION
  Report Type: Report from Study
  Country: CA (occurrence: CA)
  Receive Date: 20130411
  Receipt Date: 20130411
  Transmission Date: 20140414
  Serious: Yes (Hospitalization)
  Sender: FDA-Public Use
  Company Number: CA-JNJFOC-20130401052

PATIENT
  Age: 53 Year
  Sex: Male
  Weight: 99 kg

DRUGS (9)
  1. REMICADE [Suspect]
     Indication: CROHN^S DISEASE
     Route: 042
     Dates: start: 2007
  2. TICAGRELOR [Concomitant]
     Route: 065
  3. ATORVASTATIN [Concomitant]
     Route: 065
  4. BISOPROLOL [Concomitant]
     Route: 065
  5. ACETYLSALICYLIC ACID [Concomitant]
     Route: 065
  6. MAVIK [Concomitant]
     Route: 065
  7. VITAMIN D [Concomitant]
     Route: 065
  8. PREDNISONE [Concomitant]
     Route: 065
  9. NITRO [Concomitant]
     Route: 065

REACTIONS (1)
  - Myocardial infarction [Recovering/Resolving]
